FAERS Safety Report 11806862 (Version 1)
Quarter: 2015Q4

REPORT INFORMATION
  Report Type: Report from Study
  Country: US (occurrence: US)
  Receive Date: 20151207
  Receipt Date: 20151207
  Transmission Date: 20160305
  Serious: Yes (Other)
  Sender: FDA-Public Use
  Company Number: US-MALLINCKRODT-T201504325

PATIENT
  Age: 34 Year
  Sex: Female

DRUGS (6)
  1. REPOSITORY CORTICOTROPIN INJECTION [Suspect]
     Active Substance: CORTICOTROPIN
     Dosage: 80 UNITS TWICE WKLY
     Route: 058
  2. REPOSITORY CORTICOTROPIN INJECTION [Suspect]
     Active Substance: CORTICOTROPIN
     Dosage: 5 ML INJECTIONS X 2
     Route: 058
     Dates: end: 201511
  3. METHOTREXATE [Suspect]
     Active Substance: METHOTREXATE
     Indication: PRODUCT USED FOR UNKNOWN INDICATION
     Dosage: UNK
     Route: 065
     Dates: start: 201510
  4. REPOSITORY CORTICOTROPIN INJECTION [Suspect]
     Active Substance: CORTICOTROPIN
     Indication: SYSTEMIC LUPUS ERYTHEMATOSUS
     Dosage: 80 UNITS TWICE WKLY
     Route: 058
     Dates: start: 20150831
  5. BENLYSTA [Suspect]
     Active Substance: BELIMUMAB
     Dosage: ONCE MONTHLY
  6. BENLYSTA [Suspect]
     Active Substance: BELIMUMAB
     Indication: PRODUCT USED FOR UNKNOWN INDICATION
     Dosage: ONE DOSE EVERY 2 WEEKS
     Route: 065

REACTIONS (4)
  - Pleurisy [Not Recovered/Not Resolved]
  - Systemic lupus erythematosus [Recovering/Resolving]
  - Seizure [Unknown]
  - Pain [Not Recovered/Not Resolved]

NARRATIVE: CASE EVENT DATE: 20150831
